FAERS Safety Report 16898441 (Version 1)
Quarter: 2019Q4

REPORT INFORMATION
  Report Type: Spontaneous
  Country: US (occurrence: US)
  Receive Date: 20191008
  Receipt Date: 20191008
  Transmission Date: 20200122
  Serious: Yes (Disabling)
  Sender: FDA-Public Use
  Company Number: None

PATIENT
  Age: 66 Year
  Sex: Male
  Weight: 128.37 kg

DRUGS (2)
  1. TRULICITY [Concomitant]
     Active Substance: DULAGLUTIDE
     Dates: start: 20190415, end: 20190915
  2. TRULICITY [Suspect]
     Active Substance: DULAGLUTIDE
     Indication: OPTIC NEUROPATHY
     Route: 058
     Dates: start: 20190415, end: 20190915

REACTIONS (2)
  - Optic neuropathy [None]
  - Blindness [None]

NARRATIVE: CASE EVENT DATE: 20190915
